FAERS Safety Report 4943619-1 (Version None)
Quarter: 2006Q1

REPORT INFORMATION
  Report Type: 
  Country: None (occurrence: None)
  Receive Date: 20060310
  Receipt Date: 20060303
  Transmission Date: 20060701
  Serious: Yes (Other)
  Sender: FDA-Public Use
  Company Number: 2006030523

PATIENT
  Age: 61 Year
  Sex: Female

DRUGS (5)
  1. SOMAVERT [Suspect]
     Indication: ILL-DEFINED DISORDER
     Dosage: 10 MG (10 MG SUBCUTANEOUS), 15 MG (10 MG) SUBCUTANEOUS, 20  MG (20 MG) SUBCUTANEOUS
     Route: 058
     Dates: end: 20060208
  2. SOMAVERT [Suspect]
     Indication: ILL-DEFINED DISORDER
     Dosage: 10 MG (10 MG SUBCUTANEOUS), 15 MG (10 MG) SUBCUTANEOUS, 20  MG (20 MG) SUBCUTANEOUS
     Route: 058
     Dates: start: 20040801
  3. PARAPRES (CANDESARTAN CILEXETIL) [Concomitant]
  4. CARDURAN NEO (DOXAZOSIN) [Concomitant]
  5. INDAPAMIDE [Concomitant]

REACTIONS (1)
  - PITUITARY TUMOUR RECURRENT [None]
